FAERS Safety Report 8102946-X (Version None)
Quarter: 2012Q1

REPORT INFORMATION
  Report Type: 
  Country: None (occurrence: None)
  Receive Date: 20120127
  Receipt Date: 20120116
  Transmission Date: 20120608
  Serious: Yes (Other)
  Sender: FDA-Public Use
  Company Number: 1164981

PATIENT
  Age: 88 Year
  Sex: Female
  Weight: 22.6799 kg

DRUGS (10)
  1. FLUTICASONE PROPIONATE [Concomitant]
  2. NITRAZEPAM [Concomitant]
  3. FUROSEMIDE [Concomitant]
  4. CLOPIDOGREL [Suspect]
     Indication: ACUTE CORONARY SYNDROME
     Dosage: 75 MG ONCE DAILY, TAKEN IN MORNING, ORAL
     Route: 048
     Dates: start: 20111214
  5. OMEPRAZOLE [Concomitant]
  6. SIMVASTATIN [Concomitant]
  7. BISOPROLOL FUMARATE [Concomitant]
  8. MEROPENEM [Suspect]
     Indication: UROSEPSIS
     Dosage: 1 G GRAM(S), 1 DAY, INTRAVENOUS (NOT OTHERWISE SPECIFIED)
     Route: 042
     Dates: start: 20111217
  9. PROCHLORPERAZINE [Concomitant]
  10. TIOPRONIN [Concomitant]

REACTIONS (2)
  - UROSEPSIS [None]
  - DYSGEUSIA [None]
